FAERS Safety Report 8310533 (Version 4)
Quarter: 2013Q3

REPORT INFORMATION
  Report Type: Report from Study
  Country: DE (occurrence: DE)
  Receive Date: 20111223
  Receipt Date: 20130907
  Transmission Date: 20140515
  Serious: Yes (Hospitalization)
  Sender: FDA-Public Use
  Company Number: DE-ROCHE-1022983

PATIENT
  Age: 63 Year
  Sex: Male
  Weight: 79 kg

DRUGS (14)
  1. BEVACIZUMAB [Suspect]
     Indication: LUNG ADENOCARCINOMA
     Route: 042
     Dates: start: 20111207
  2. CISPLATIN [Suspect]
     Indication: LUNG ADENOCARCINOMA
     Route: 042
     Dates: start: 20111207
  3. PEMETREXED [Suspect]
     Indication: LUNG ADENOCARCINOMA
     Route: 042
     Dates: start: 20111207
  4. FOLIC ACID [Concomitant]
     Route: 048
  5. CYANOCOBALAMIN [Concomitant]
     Route: 051
     Dates: start: 20111104, end: 20111104
  6. DEXAMETHASON [Concomitant]
     Indication: PROPHYLAXIS
     Dosage: 4-8 MG
     Route: 048
  7. PREDNISOLON [Concomitant]
     Indication: CHRONIC OBSTRUCTIVE PULMONARY DISEASE
     Route: 048
  8. APREPITANT [Concomitant]
     Indication: PROPHYLAXIS
     Dosage: 80-125 MG
     Route: 048
  9. GRANISETRON [Concomitant]
     Indication: PROPHYLAXIS
     Route: 048
  10. LOPERAMIDE [Concomitant]
     Route: 048
  11. METOCLOPRAMID [Concomitant]
     Route: 048
  12. GABAPENTIN [Concomitant]
     Route: 048
  13. SYMBICORT [Concomitant]
     Indication: CHRONIC OBSTRUCTIVE PULMONARY DISEASE
     Route: 055
  14. BERODUAL [Concomitant]
     Indication: CHRONIC OBSTRUCTIVE PULMONARY DISEASE
     Route: 055

REACTIONS (6)
  - General physical health deterioration [Not Recovered/Not Resolved]
  - Proteinuria [Not Recovered/Not Resolved]
  - Pyrexia [Unknown]
  - Nausea [Not Recovered/Not Resolved]
  - Pain [Recovered/Resolved]
  - Infection [Not Recovered/Not Resolved]
